FAERS Safety Report 22366359 (Version 1)
Quarter: 2023Q2

REPORT INFORMATION
  Report Type: Spontaneous
  Country: US (occurrence: None)
  Receive Date: 20230524
  Receipt Date: 20230524
  Transmission Date: 20230722
  Serious: No
  Sender: FDA-Public Use
  Company Number: None

PATIENT
  Age: 45 Year
  Sex: Male
  Weight: 112.9 kg

DRUGS (4)
  1. EPCLUSA [Suspect]
     Active Substance: SOFOSBUVIR\VELPATASVIR
     Indication: Hepatitis C
     Dosage: FREQUENCY : DAILY;?
     Route: 048
     Dates: start: 20230502
  2. AMLODIPINE [Concomitant]
     Active Substance: AMLODIPINE BESYLATE
     Dates: start: 20230403
  3. LEVEMIR [Concomitant]
     Active Substance: INSULIN DETEMIR
     Dates: start: 20230403
  4. METFORMIN [Concomitant]
     Active Substance: METFORMIN HYDROCHLORIDE
     Dates: start: 20230403

REACTIONS (3)
  - Nausea [None]
  - Vomiting [None]
  - Pruritus [None]

NARRATIVE: CASE EVENT DATE: 20230502
